FAERS Safety Report 6555614-X (Version None)
Quarter: 2010Q1

REPORT INFORMATION
  Report Type: 
  Country: None (occurrence: None)
  Receive Date: 20100128
  Receipt Date: 20100121
  Transmission Date: 20100710
  Serious: Yes (Other)
  Sender: FDA-Public Use
  Company Number: FR-JNJFOC-20100108617

PATIENT
  Age: 4 Decade
  Sex: Female

DRUGS (7)
  1. REMICADE [Suspect]
     Indication: CROHN'S DISEASE
     Route: 042
  2. REMICADE [Suspect]
     Route: 042
  3. REMICADE [Suspect]
     Route: 042
  4. REMICADE [Suspect]
     Route: 042
  5. REMICADE [Suspect]
     Route: 042
  6. REMICADE [Suspect]
     Route: 042
  7. CORTICOSTEROIDS [Concomitant]
     Indication: PREMEDICATION

REACTIONS (7)
  - CHEST DISCOMFORT [None]
  - CHILLS [None]
  - ERYTHEMA [None]
  - INFUSION RELATED REACTION [None]
  - MUSCLE SPASMS [None]
  - PARAESTHESIA [None]
  - VOMITING [None]
